FAERS Safety Report 24155809 (Version 2)
Quarter: 2024Q3

REPORT INFORMATION
  Report Type: Spontaneous
  Country: ID (occurrence: ID)
  Receive Date: 20240731
  Receipt Date: 20240814
  Transmission Date: 20241016
  Serious: Yes (Other)
  Sender: RANBAXY
  Company Number: ID-SUN PHARMACEUTICAL INDUSTRIES LTD-2024R1-459510

PATIENT
  Age: 23 Year
  Sex: Male

DRUGS (3)
  1. DOXORUBICIN [Suspect]
     Active Substance: DOXORUBICIN
     Indication: Synovial sarcoma
     Dosage: UNK
     Route: 065
  2. IFOSFAMIDE [Suspect]
     Active Substance: IFOSFAMIDE
     Indication: Synovial sarcoma
     Dosage: UNK
     Route: 065
  3. MESNA [Suspect]
     Active Substance: MESNA
     Indication: Synovial sarcoma
     Dosage: UNK
     Route: 065

REACTIONS (1)
  - Therapy partial responder [Unknown]
